FAERS Safety Report 19218516 (Version 4)
Quarter: 2021Q3

REPORT INFORMATION
  Report Type: Spontaneous
  Country: US (occurrence: US)
  Receive Date: 20210505
  Receipt Date: 20210909
  Transmission Date: 20211014
  Serious: Yes (Hospitalization, Other)
  Sender: FDA-Public Use
  Company Number: US-PFIZER INC-2021458877

PATIENT
  Age: 57 Year
  Sex: Female

DRUGS (2)
  1. IBRANCE [Suspect]
     Active Substance: PALBOCICLIB
     Dosage: 100 MG (14 DAYS ON FOLLOWED BY 14 DAYS OFF)
     Dates: start: 20210530
  2. IBRANCE [Suspect]
     Active Substance: PALBOCICLIB
     Dosage: 125 MG, CYCLIC
     Dates: start: 20210402

REACTIONS (12)
  - Dyspnoea [Unknown]
  - Lymphoedema [Unknown]
  - Chest discomfort [Unknown]
  - Condition aggravated [Unknown]
  - White blood cell count decreased [Unknown]
  - Myocardial infarction [Unknown]
  - Chest pain [Unknown]
  - Vomiting [Unknown]
  - Diarrhoea [Unknown]
  - Neuropathy peripheral [Unknown]
  - Fatigue [Unknown]
  - Hypersomnia [Unknown]

NARRATIVE: CASE EVENT DATE: 2021
